FAERS Safety Report 15774122 (Version 1)
Quarter: 2018Q4

REPORT INFORMATION
  Report Type: Spontaneous
  Country: AU (occurrence: AU)
  Receive Date: 20181229
  Receipt Date: 20181229
  Transmission Date: 20190205
  Serious: Yes (Other)
  Sender: FDA-Public Use
  Company Number: AU-GW PHARMA-201810AUGW0498

PATIENT

DRUGS (12)
  1. PANADOL [Concomitant]
     Active Substance: ACETAMINOPHEN
     Indication: ANALGESIC THERAPY
     Dosage: 170 MILLIGRAM, PRN
     Dates: start: 2017
  2. EPIDIOLEX [Suspect]
     Active Substance: CANNABIDIOL
     Indication: INFANTILE SPASMS
     Dosage: 17MG/KG, 110 MILLIGRAM, BID
     Dates: start: 20161130, end: 20181024
  3. NACL [Concomitant]
     Active Substance: SODIUM CHLORIDE
     Indication: NASAL CONGESTION
     Dosage: COUPLE OF DROPS, PRN
     Route: 045
     Dates: start: 2016
  4. MIDAZOLAM [Concomitant]
     Active Substance: MIDAZOLAM HYDROCHLORIDE
     Indication: SEIZURE
     Dosage: 0.4 MILLILITER, PRN
     Route: 002
     Dates: start: 2017
  5. PHENYTOIN. [Concomitant]
     Active Substance: PHENYTOIN
     Indication: INFANTILE SPASMS
     Dosage: 50MG AM/25MG MIDDAY/50MG PM
     Dates: start: 201710
  6. DONNATAB [Concomitant]
     Active Substance: ATROPINE SULFATE\HYOSCYAMINE SULFATE\SCOPOLAMINE HYDROBROMIDE
     Indication: GASTROOESOPHAGEAL REFLUX DISEASE
     Dosage: 1/2 TAB, BID
     Dates: start: 20171113
  7. KEPPRA [Concomitant]
     Active Substance: LEVETIRACETAM
     Indication: INFANTILE SPASMS
     Dosage: 187.5 MG AM, 62.5 MG MIDDAY, 187.5 MG PM, TDS
     Dates: start: 20170331
  8. TAMATE [Concomitant]
     Active Substance: TOPIRAMATE
     Indication: INFANTILE SPASMS
     Dosage: 37.5 MILLIGRAM, BID
  9. CIRCADIN [Concomitant]
     Active Substance: MELATONIN
     Indication: PRODUCT USED FOR UNKNOWN INDICATION
     Dosage: 2 MILLIGRAM, EVERY NIGHT
  10. SALBUTAMOL [Concomitant]
     Active Substance: ALBUTEROL
     Indication: ASTHMA
     Dosage: 6 PUFFS, PRN
     Route: 055
     Dates: start: 2016
  11. POTASSIUM CITRATE. [Concomitant]
     Active Substance: POTASSIUM CITRATE
     Indication: SUPPLEMENTATION THERAPY
     Dosage: 4.5 MILLILITER, TID
     Dates: start: 20171113
  12. THIAMINE. [Concomitant]
     Active Substance: THIAMINE
     Indication: SUPPLEMENTATION THERAPY
     Dosage: 25 MILLIGRAM, BID
     Dates: start: 2017

REACTIONS (4)
  - Vomiting [Recovered/Resolved]
  - Abdominal tenderness [Recovered/Resolved]
  - Transaminases increased [Recovered/Resolved]
  - Faeces pale [Recovered/Resolved]

NARRATIVE: CASE EVENT DATE: 20181023
